FAERS Safety Report 9668146 (Version 1)
Quarter: 2013Q4

REPORT INFORMATION
  Report Type: Spontaneous
  Country: US (occurrence: None)
  Receive Date: 20131101
  Receipt Date: 20131101
  Transmission Date: 20140711
  Serious: Yes (Other)
  Sender: FDA-Public Use
  Company Number: 001616796A

PATIENT
  Age: 31 Year
  Sex: Female

DRUGS (4)
  1. PROACTIV RENEWING CLEANSER [Suspect]
     Indication: ACNE
     Dosage: ONCE DAILY DERMAL
     Dates: start: 20130709, end: 201308
  2. PROACTIV REPAIRING TREATMENT [Suspect]
     Indication: ACNE
     Dosage: ONCE DAILY DERMAL
     Dates: start: 20130709, end: 201308
  3. PROACTIV DEEP CLEANSING WASH [Suspect]
     Indication: ACNE
     Dosage: ONCE DAILY DERMAL
     Dates: start: 20130709, end: 201308
  4. PROACTIV ADVANCED BLEMISH TREATMENT [Suspect]
     Indication: ACNE
     Dosage: ONCE DAILY DERMAL
     Dates: start: 20130709, end: 201308

REACTIONS (6)
  - Swelling face [None]
  - Pruritus [None]
  - Erythema [None]
  - Dyspnoea [None]
  - Urticaria [None]
  - Panic attack [None]
